FAERS Safety Report 24307567 (Version 5)
Quarter: 2024Q4

REPORT INFORMATION
  Report Type: Spontaneous
  Country: IN (occurrence: IN)
  Receive Date: 20240911
  Receipt Date: 20241030
  Transmission Date: 20250115
  Serious: Yes (Other)
  Sender: PFIZER
  Company Number: IN-PFIZER INC-PV202400118039

PATIENT
  Age: 72 Year
  Sex: Male
  Weight: 95 kg

DRUGS (4)
  1. LORLATINIB [Suspect]
     Active Substance: LORLATINIB
     Indication: Lung neoplasm malignant
     Dosage: 100 MG, 1X/DAY
     Route: 048
     Dates: start: 20240711, end: 20240903
  2. TELMA [TELMISARTAN] [Concomitant]
     Indication: Hypertension
     Dosage: ONCE A DAY IN A MORNING
  3. CHLORTHALIDONE [Concomitant]
     Active Substance: CHLORTHALIDONE
     Indication: Hypertension
     Dosage: ONCE A DAY IN A MORNING
  4. DILTIAZEM [Concomitant]
     Active Substance: DILTIAZEM
     Indication: Cardiac disorder
     Dosage: ONCE A DAY IN A NIGHT

REACTIONS (4)
  - Aortic valve stenosis [Unknown]
  - Condition aggravated [Unknown]
  - Dyspnoea exertional [Recovered/Resolved]
  - Peripheral swelling [Recovered/Resolved]

NARRATIVE: CASE EVENT DATE: 20240730
